FAERS Safety Report 4804549-9 (Version None)
Quarter: 2005Q4

REPORT INFORMATION
  Report Type: 
  Country: None (occurrence: None)
  Receive Date: 20051020
  Receipt Date: 20050701
  Transmission Date: 20060501
  Serious: Yes (Hospitalization, Other)
  Sender: FDA-Public Use
  Company Number: US-MERCK-0507USA00464

PATIENT
  Age: 64 Year
  Sex: Male
  Weight: 73 kg

DRUGS (4)
  1. VIOXX [Suspect]
     Indication: ARTHRITIS
     Route: 048
     Dates: start: 19990101, end: 20040901
  2. PREVACID [Concomitant]
     Route: 065
  3. ALBUTEROL [Concomitant]
     Route: 065
  4. ALBUTEROL [Concomitant]
     Route: 065

REACTIONS (4)
  - ASTHMA [None]
  - CARDIAC DISORDER [None]
  - MYOCARDIAL INFARCTION [None]
  - POLYTRAUMATISM [None]
